FAERS Safety Report 10986990 (Version 1)
Quarter: 2015Q2

REPORT INFORMATION
  Report Type: Spontaneous
  Country: US (occurrence: None)
  Receive Date: 20150402
  Receipt Date: 20150402
  Transmission Date: 20150821
  Serious: Yes (Other)
  Sender: FDA-Public Use
  Company Number: HA15-081-AE

PATIENT
  Age: 43 Year
  Sex: Female
  Weight: 163.3 kg

DRUGS (3)
  1. BENADRYL [Concomitant]
     Active Substance: DIPHENHYDRAMINE HYDROCHLORIDE
  2. SULFAMETHOXAZOLE-TRIMETHOPRIM (SMZ) [Suspect]
     Active Substance: SULFAMETHOXAZOLE\TRIMETHOPRIM
     Indication: SINUSITIS
     Dosage: 1 TAB/BID/ORAL
     Route: 048
     Dates: start: 20150308, end: 20150313
  3. MUCINEX [Concomitant]
     Active Substance: GUAIFENESIN

REACTIONS (16)
  - Rash [None]
  - Constipation [None]
  - Abdominal pain upper [None]
  - Chills [None]
  - Pyrexia [None]
  - Lethargy [None]
  - Aspartate aminotransferase increased [None]
  - Chromaturia [None]
  - Abdominal discomfort [None]
  - Urticaria [None]
  - Confusional state [None]
  - Fatigue [None]
  - Alanine aminotransferase increased [None]
  - Pruritus [None]
  - Dizziness [None]
  - Urine output decreased [None]

NARRATIVE: CASE EVENT DATE: 20150313
